FAERS Safety Report 24219658 (Version 3)
Quarter: 2024Q3

REPORT INFORMATION
  Report Type: Report from Study
  Country: AR (occurrence: AR)
  Receive Date: 20240817
  Receipt Date: 20240830
  Transmission Date: 20241016
  Serious: Yes (Other)
  Sender: NOVARTIS
  Company Number: AR-002147023-NVSC2023AR245902

PATIENT
  Sex: Female

DRUGS (2)
  1. KISQALI [Suspect]
     Active Substance: RIBOCICLIB
     Indication: Breast cancer metastatic
     Dosage: 600 MG, QD (200 MG THRICE DAILY)
     Route: 048
     Dates: start: 20231016
  2. LETROZOLE [Suspect]
     Active Substance: LETROZOLE
     Indication: Breast cancer metastatic
     Dosage: UNK
     Route: 065

REACTIONS (13)
  - Breast cancer metastatic [Unknown]
  - Malignant neoplasm progression [Unknown]
  - Phlebitis infective [Unknown]
  - White blood cell count decreased [Unknown]
  - Pain in extremity [Not Recovered/Not Resolved]
  - Confusional state [Unknown]
  - Memory impairment [Unknown]
  - Anxiety [Unknown]
  - Inappropriate schedule of product administration [Unknown]
  - Pain [Unknown]
  - Back pain [Unknown]
  - Chest pain [Unknown]
  - Arthralgia [Unknown]

NARRATIVE: CASE EVENT DATE: 20230101
